FAERS Safety Report 6227401-3 (Version None)
Quarter: 2009Q2

REPORT INFORMATION
  Report Type: 
  Country: None (occurrence: None)
  Receive Date: 20090610
  Receipt Date: 20090610
  Transmission Date: 20091009
  Serious: Yes (Other)
  Sender: FDA-Public Use
  Company Number: None

PATIENT
  Age: 56 Year
  Sex: Female
  Weight: 54.4316 kg

DRUGS (2)
  1. LYRICA [Suspect]
     Indication: FIBROMYALGIA
     Dosage: 75MG TWICE DAILY PO
     Route: 048
     Dates: start: 20080616, end: 20090605
  2. LYRICA [Suspect]
     Indication: MIGRAINE
     Dosage: 75MG TWICE DAILY PO
     Route: 048
     Dates: start: 20080616, end: 20090605

REACTIONS (1)
  - UNEVALUABLE EVENT [None]
